FAERS Safety Report 4479567-3 (Version None)
Quarter: 2004Q4

REPORT INFORMATION
  Report Type: 
  Country: None (occurrence: None)
  Receive Date: 20041015
  Receipt Date: 20041005
  Transmission Date: 20050328
  Serious: No
  Sender: FDA-Public Use
  Company Number: 04H-083-0276278-00

PATIENT

DRUGS (2)
  1. LEUCOVORIN CALCIUM [Suspect]
     Indication: CHEMOTHERAPY
     Dosage: 150 MG/M2/DAYX5 DAYS, EVERY 3 WEEKS, INTRAVENOUS
     Route: 042
  2. FLUOROURACIL [Suspect]
     Indication: CHEMOTHERAPY
     Dosage: 900 MG/M2/DAYX5 DAYS, EVERY 3 WEEKS, INTRAVENOUS
     Route: 042

REACTIONS (1)
  - SKIN TOXICITY [None]
